FAERS Safety Report 4582414-2 (Version None)
Quarter: 2005Q1

REPORT INFORMATION
  Report Type: 
  Country: None (occurrence: None)
  Receive Date: 20050119
  Receipt Date: 20040604
  Transmission Date: 20050727
  Serious: Yes (Death)
  Sender: FDA-Public Use
  Company Number: US-JNJFOC-20040501623

PATIENT
  Age: 76 Year
  Sex: Female
  Weight: 88.905 kg

DRUGS (4)
  1. DOXIL [Suspect]
     Indication: NON-HODGKIN'S LYMPHOMA
     Dosage: 30MG/M2, INTRAVENOUS, EVERY 3 WEEKS X5 CYCLES
     Route: 042
     Dates: start: 20030508, end: 20030821
  2. PROCRIT (INJECTION) ERYTHROPOIETIN [Concomitant]
  3. CYTOXAN [Concomitant]
  4. NEULAST (ALL OTHER THERAPEUTIC PRODUCTS) [Concomitant]

REACTIONS (1)
  - NON-HODGKIN'S LYMPHOMA [None]
